FAERS Safety Report 9207353 (Version 1)
Quarter: 2013Q1

REPORT INFORMATION
  Report Type: Spontaneous
  Country: US (occurrence: None)
  Receive Date: 20120803
  Receipt Date: 20120803
  Transmission Date: 20140127
  Serious: Yes (Hospitalization)
  Sender: FDA-Public Use
  Company Number: 2011SP043483

PATIENT
  Age: 60 Year
  Sex: Male

DRUGS (1)
  1. INTRON A [Suspect]
     Indication: WEST NILE VIRAL INFECTION
     Route: 042
     Dates: start: 20110913

REACTIONS (3)
  - Pyrexia [None]
  - Chills [None]
  - Off label use [None]
